FAERS Safety Report 9362929 (Version 3)
Quarter: 2013Q3

REPORT INFORMATION
  Report Type: Report from Study
  Country: CA (occurrence: CA)
  Receive Date: 20130624
  Receipt Date: 20130822
  Transmission Date: 20140515
  Serious: Yes (Other)
  Sender: FDA-Public Use
  Company Number: CA-ROCHE-1239573

PATIENT
  Sex: Male

DRUGS (10)
  1. TRASTUZUMAB EMTANSINE [Suspect]
     Indication: BREAST CANCER
     Route: 042
     Dates: start: 20130109
  2. TRASTUZUMAB EMTANSINE [Suspect]
     Dosage: NO. VIALS 2
     Route: 065
     Dates: start: 20130110
  3. TRASTUZUMAB EMTANSINE [Suspect]
     Dosage: NO. VIALS 2
     Route: 065
     Dates: start: 20130131
  4. TRASTUZUMAB EMTANSINE [Suspect]
     Dosage: NO. VIALS 2
     Route: 065
     Dates: start: 20130211
  5. TRASTUZUMAB EMTANSINE [Suspect]
     Dosage: NO. VIALS 2
     Route: 065
     Dates: start: 20130314
  6. TRASTUZUMAB EMTANSINE [Suspect]
     Dosage: NO. VIALS 2
     Route: 065
     Dates: start: 20130409
  7. TRASTUZUMAB EMTANSINE [Suspect]
     Dosage: NO. VIALS 2
     Route: 065
     Dates: start: 20130425
  8. TRASTUZUMAB EMTANSINE [Suspect]
     Dosage: NO. VIALS 2
     Route: 065
     Dates: start: 20130516
  9. TRASTUZUMAB EMTANSINE [Suspect]
     Dosage: NO. VIALS 2
     Route: 065
     Dates: start: 20130617
  10. DEXAMETHASONE [Concomitant]
     Route: 065

REACTIONS (1)
  - Metastases to meninges [Unknown]
